FAERS Safety Report 4416252-8 (Version None)
Quarter: 2004Q3

REPORT INFORMATION
  Report Type: 
  Country: None (occurrence: None)
  Receive Date: 20040804
  Receipt Date: 20040804
  Transmission Date: 20050211
  Serious: Yes (Life-Threatening)
  Sender: FDA-Public Use
  Company Number: None

PATIENT
  Age: 29 Year
  Sex: Male
  Weight: 63.5036 kg

DRUGS (4)
  1. COLY-MYCIN S [Suspect]
     Indication: PROPHYLAXIS
     Dosage: NEBS BID
     Dates: start: 20030706, end: 20030711
  2. COLY-MYCIN S [Suspect]
     Indication: PSEUDOMONAS INFECTION
     Dosage: NEBS BID
     Dates: start: 20030706, end: 20030711
  3. COLY-MYCIN S [Suspect]
     Indication: RESPIRATORY TRACT INFECTION
     Dosage: NEBS BID
     Dates: start: 20030706, end: 20030711
  4. VANCOMYCIN [Concomitant]

REACTIONS (1)
  - LEUKOPENIA [None]
